FAERS Safety Report 9786381 (Version 1)
Quarter: 2013Q4

REPORT INFORMATION
  Report Type: Report from Study
  Country: DE (occurrence: DE)
  Receive Date: 20131227
  Receipt Date: 20131227
  Transmission Date: 20140711
  Serious: Yes (Hospitalization)
  Sender: FDA-Public Use
  Company Number: DE-US-EMD SERONO, INC.-7258356

PATIENT
  Sex: Female
  Weight: 49 kg

DRUGS (2)
  1. REBIF [Suspect]
     Indication: CLINICALLY ISOLATED SYNDROME
     Dosage: STARTER KIT
     Route: 058
     Dates: start: 20130613, end: 201307
  2. REBIF [Suspect]
     Indication: RELAPSING-REMITTING MULTIPLE SCLEROSIS
     Route: 058
     Dates: start: 20130716, end: 20131006

REACTIONS (1)
  - Autoimmune hepatitis [Unknown]
